FAERS Safety Report 9657333 (Version 1)
Quarter: 2013Q4

REPORT INFORMATION
  Report Type: Spontaneous
  Country: US (occurrence: US)
  Receive Date: 20131030
  Receipt Date: 20131030
  Transmission Date: 20140711
  Serious: Yes (Other)
  Sender: FDA-Public Use
  Company Number: US-GLAXOSMITHKLINE-A1047562A

PATIENT
  Age: 34 Year
  Sex: Female

DRUGS (2)
  1. ADVAIR [Suspect]
     Indication: RESPIRATORY DISORDER
     Route: 055
     Dates: start: 20121220
  2. VENTOLIN [Suspect]
     Indication: RESPIRATORY DISORDER
     Dosage: 90MCG UNKNOWN
     Route: 055
     Dates: start: 20120220

REACTIONS (1)
  - Pneumonia [Recovering/Resolving]
